FAERS Safety Report 8178735-7 (Version None)
Quarter: 2012Q1

REPORT INFORMATION
  Report Type: 
  Country: None (occurrence: None)
  Receive Date: 20120301
  Receipt Date: 20120301
  Transmission Date: 20120608
  Serious: Yes (Other)
  Sender: FDA-Public Use
  Company Number: None

PATIENT
  Age: 59 Year
  Sex: Female

DRUGS (1)
  1. HUMIRA [Suspect]
     Indication: RHEUMATOID ARTHRITIS
     Dosage: 40MG
     Route: 058
     Dates: start: 20120126, end: 20120126

REACTIONS (4)
  - BUTTERFLY RASH [None]
  - RASH ERYTHEMATOUS [None]
  - PARAESTHESIA [None]
  - HYPOAESTHESIA [None]
